FAERS Safety Report 8240495-9 (Version None)
Quarter: 2012Q1

REPORT INFORMATION
  Report Type: 
  Country: None (occurrence: None)
  Receive Date: 20120328
  Receipt Date: 20120320
  Transmission Date: 20120608
  Serious: Yes (Death)
  Sender: FDA-Public Use
  Company Number: IN-ROCHE-1047155

PATIENT
  Age: 38 Year
  Weight: 70 kg

DRUGS (14)
  1. IRINOTECAN HYDROCHLORIDE [Suspect]
     Route: 065
     Dates: start: 20111106
  2. AVASTIN [Suspect]
     Route: 065
     Dates: start: 20111106
  3. IRINOTECAN HYDROCHLORIDE [Suspect]
     Route: 065
     Dates: start: 20111016
  4. AVASTIN [Suspect]
     Indication: GLIOBLASTOMA MULTIFORME
     Route: 065
     Dates: start: 20110813
  5. AVASTIN [Suspect]
     Route: 065
     Dates: start: 20111124
  6. AVASTIN [Suspect]
     Route: 065
     Dates: start: 20111002
  7. AVASTIN [Suspect]
     Route: 065
     Dates: start: 20111215
  8. IRINOTECAN HYDROCHLORIDE [Suspect]
     Route: 065
     Dates: start: 20111124
  9. AVASTIN [Suspect]
     Route: 065
     Dates: start: 20110902
  10. IRINOTECAN HYDROCHLORIDE [Suspect]
     Indication: GLIOBLASTOMA MULTIFORME
     Route: 065
     Dates: start: 20110813
  11. IRINOTECAN HYDROCHLORIDE [Suspect]
     Route: 065
     Dates: start: 20110902
  12. IRINOTECAN HYDROCHLORIDE [Suspect]
     Route: 065
     Dates: start: 20111002
  13. IRINOTECAN HYDROCHLORIDE [Suspect]
     Route: 065
     Dates: start: 20111215
  14. AVASTIN [Suspect]
     Route: 065
     Dates: start: 20111016

REACTIONS (3)
  - NEOPLASM PROGRESSION [None]
  - GLIOBLASTOMA MULTIFORME [None]
  - NEOPLASM MALIGNANT [None]
